FAERS Safety Report 8789136 (Version 1)
Quarter: 2012Q4

REPORT INFORMATION
  Report Type: Spontaneous
  Country: US (occurrence: None)
  Receive Date: 20120910
  Receipt Date: 20120910
  Transmission Date: 20130627
  Serious: Yes (Life-Threatening, Hospitalization)
  Sender: FDA-Public Use
  Company Number: None

PATIENT
  Age: 37 Year
  Sex: Female
  Weight: 63.5 kg

DRUGS (2)
  1. MUCINEX DM [Suspect]
  2. SUDAFED [Suspect]

REACTIONS (3)
  - Intentional drug misuse [None]
  - Theft [None]
  - Overdose [None]
